FAERS Safety Report 9720818 (Version 1)
Quarter: 2013Q4

REPORT INFORMATION
  Report Type: Report from Study
  Country: DE (occurrence: DE)
  Receive Date: 20131129
  Receipt Date: 20131129
  Transmission Date: 20140711
  Serious: Yes (Other)
  Sender: FDA-Public Use
  Company Number: GXKR2013DE003688

PATIENT
  Age: 6 Year
  Sex: Male
  Weight: 19.9 kg

DRUGS (1)
  1. SOMATROPIN [Suspect]
     Indication: SMALL FOR DATES BABY
     Dosage: 0.7 MG, QD
     Dates: start: 20111227

REACTIONS (2)
  - Ear infection [Recovered/Resolved]
  - Adenoidal hypertrophy [Recovered/Resolved]
